FAERS Safety Report 8962128 (Version 1)
Quarter: 2012Q4

REPORT INFORMATION
  Report Type: 
  Country: NL (occurrence: NL)
  Receive Date: 20121212
  Receipt Date: 20121212
  Transmission Date: 20130627
  Serious: No
  Sender: FDA-Public Use
  Company Number: NL-PFIZER INC-2012309950

PATIENT
  Age: 60 Year
  Sex: Female

DRUGS (2)
  1. ARGANOVA [Suspect]
     Indication: HEPARIN-INDUCED THROMBOCYTOPENIA TYPE II
     Dosage: 250 ug/kg, UNK
     Route: 040
     Dates: start: 20120929, end: 20121104
  2. ARGANOVA [Suspect]
     Dosage: 2 mcg/Kg/min for 4 hrs
     Route: 041

REACTIONS (4)
  - Dizziness [Unknown]
  - Syncope [Recovering/Resolving]
  - Hypotension [Recovering/Resolving]
  - Coagulopathy [Recovering/Resolving]
